FAERS Safety Report 17977102 (Version 3)
Quarter: 2020Q4

REPORT INFORMATION
  Report Type: Report from Study
  Country: US (occurrence: US)
  Receive Date: 20200702
  Receipt Date: 20201127
  Transmission Date: 20210113
  Serious: No
  Sender: FDA-Public Use
  Company Number: NVSC2020US186850

PATIENT
  Sex: Female

DRUGS (4)
  1. ENTRESTO [Suspect]
     Active Substance: SACUBITRIL\VALSARTAN
     Dosage: UNK (INCREASED DOSE)
     Route: 048
  2. ENTRESTO [Suspect]
     Active Substance: SACUBITRIL\VALSARTAN
     Indication: PRODUCT USED FOR UNKNOWN INDICATION
     Dosage: 50 MG, BID (24/26 MG)
     Route: 048
  3. ENTRESTO [Suspect]
     Active Substance: SACUBITRIL\VALSARTAN
     Dosage: 50 MG, BID (24/26 MG)
     Route: 048
  4. ENTRESTO [Suspect]
     Active Substance: SACUBITRIL\VALSARTAN
     Route: 048

REACTIONS (12)
  - Ejection fraction abnormal [Recovering/Resolving]
  - Anxiety [Unknown]
  - Fear [Unknown]
  - Weight decreased [Unknown]
  - Throat clearing [Unknown]
  - Fatigue [Unknown]
  - Oedema [Unknown]
  - Blood pressure abnormal [Recovered/Resolved]
  - Cough [Unknown]
  - Memory impairment [Unknown]
  - Rhinorrhoea [Unknown]
  - Nervousness [Unknown]
